FAERS Safety Report 15276201 (Version 2)
Quarter: 2018Q4

REPORT INFORMATION
  Report Type: Spontaneous
  Country: US (occurrence: US)
  Receive Date: 20180814
  Receipt Date: 20181016
  Transmission Date: 20190204
  Serious: Yes (Other)
  Sender: FDA-Public Use
  Company Number: PHEH2018US032755

PATIENT
  Sex: Female

DRUGS (3)
  1. TAMINOL [Concomitant]
     Indication: PRODUCT USED FOR UNKNOWN INDICATION
     Route: 065
  2. GABAPENTIN. [Concomitant]
     Active Substance: GABAPENTIN
     Indication: PRODUCT USED FOR UNKNOWN INDICATION
     Route: 065
  3. SANDOSTATIN LAR DEPOT [Suspect]
     Active Substance: OCTREOTIDE ACETATE
     Indication: PRODUCT USED FOR UNKNOWN INDICATION
     Dosage: UNK
     Route: 065
     Dates: start: 20180731

REACTIONS (8)
  - Loss of consciousness [Unknown]
  - Vertigo [Unknown]
  - Dizziness [Unknown]
  - Carcinoid tumour [Unknown]
  - Muscle spasms [Unknown]
  - Paraesthesia [Unknown]
  - Arthritis [Unknown]
  - Abdominal pain upper [Unknown]
